FAERS Safety Report 8448116-7 (Version None)
Quarter: 2012Q2

REPORT INFORMATION
  Report Type: 
  Country: None (occurrence: None)
  Receive Date: 20120619
  Receipt Date: 20120612
  Transmission Date: 20120825
  Serious: Yes (Other)
  Sender: FDA-Public Use
  Company Number: US-ALEXION-A201200590

PATIENT
  Sex: Male

DRUGS (4)
  1. JANUVIA [Concomitant]
     Indication: DIABETES MELLITUS
     Dosage: 50 MG, QD
     Route: 048
  2. SOLIRIS [Suspect]
     Indication: PAROXYSMAL NOCTURNAL HAEMOGLOBINURIA
     Dosage: 900 MG, Q2W
     Route: 042
     Dates: start: 20111201
  3. JAKAFI [Concomitant]
     Indication: MYELOFIBROSIS
     Dosage: 200 MG, BID
     Route: 048
  4. DANAZOL [Concomitant]
     Indication: MYELOFIBROSIS
     Dosage: 600 MG, 3 AT NIGHT
     Route: 048

REACTIONS (4)
  - LUNG NEOPLASM [None]
  - COUGH [None]
  - PLEURAL EFFUSION [None]
  - PULMONARY HYPERTENSION [None]
